FAERS Safety Report 18510947 (Version 4)
Quarter: 2021Q3

REPORT INFORMATION
  Report Type: Spontaneous
  Country: AT (occurrence: AT)
  Receive Date: 20201117
  Receipt Date: 20210730
  Transmission Date: 20211014
  Serious: Yes (Death, Other)
  Sender: FDA-Public Use
  Company Number: AT-MYLANLABS-2020M1093917

PATIENT
  Age: 70 Year
  Sex: Male
  Weight: 65 kg

DRUGS (13)
  1. TRASTUZUMAB. [Suspect]
     Active Substance: TRASTUZUMAB
     Indication: METASTASES TO LYMPH NODES
     Dosage: MAINTENANCE THERAPY
     Route: 065
     Dates: start: 201703, end: 201810
  2. TRASTUZUMAB. [Suspect]
     Active Substance: TRASTUZUMAB
     Dosage: 6 CYCLICAL
     Dates: start: 201609, end: 201703
  3. CAPECITABINE. [Suspect]
     Active Substance: CAPECITABINE
     Indication: METASTASES TO LIVER
     Dosage: SYSTEMIC THERAPY WITH TRASTUZUMAB
     Route: 048
     Dates: start: 201810, end: 201903
  4. CAPECITABINE. [Suspect]
     Active Substance: CAPECITABINE
     Indication: HER2 POSITIVE GASTRIC CANCER
     Dosage: CYCLICAL
     Route: 065
     Dates: start: 201609, end: 201703
  5. CAPECITABINE. [Suspect]
     Active Substance: CAPECITABINE
     Indication: ADENOCARCINOMA GASTRIC
     Dosage: UNK
     Dates: start: 2016
  6. CAPECITABINE. [Suspect]
     Active Substance: CAPECITABINE
     Indication: METASTASES TO LYMPH NODES
     Dosage: 6 CYCLICAL
     Dates: start: 201609, end: 201703
  7. TRASTUZUMAB. [Suspect]
     Active Substance: TRASTUZUMAB
     Indication: ADENOCARCINOMA GASTRIC
     Dosage: UNK
     Route: 065
     Dates: end: 201810
  8. TRASTUZUMAB. [Suspect]
     Active Substance: TRASTUZUMAB
     Indication: METASTASES TO LIVER
     Dosage: SYSTEMIC THERAPY WITH ORAL CAPECITABINE
     Route: 065
     Dates: start: 201810, end: 201903
  9. CISPLATIN. [Suspect]
     Active Substance: CISPLATIN
     Indication: ADENOCARCINOMA GASTRIC
     Dosage: UNK
     Dates: start: 2016
  10. CISPLATIN. [Suspect]
     Active Substance: CISPLATIN
     Indication: HER2 POSITIVE GASTRIC CANCER
     Dosage: CYCLICAL
     Route: 065
     Dates: start: 201609, end: 201703
  11. TRASTUZUMAB. [Suspect]
     Active Substance: TRASTUZUMAB
     Indication: HER2 POSITIVE GASTRIC CANCER
     Dosage: CYCLICAL
     Route: 065
     Dates: start: 201609, end: 201703
  12. CISPLATIN. [Suspect]
     Active Substance: CISPLATIN
     Indication: METASTASES TO LIVER
     Dosage: 6 CYCLICAL
     Dates: start: 201609, end: 201703
  13. CISPLATIN. [Suspect]
     Active Substance: CISPLATIN
     Indication: METASTASES TO LYMPH NODES

REACTIONS (6)
  - Toxicity to various agents [Unknown]
  - Neoplasm progression [Fatal]
  - White blood cell count decreased [Unknown]
  - Palmar-plantar erythrodysaesthesia syndrome [Unknown]
  - Infection [Unknown]
  - Metastatic gastric cancer [Fatal]

NARRATIVE: CASE EVENT DATE: 201810
